FAERS Safety Report 4603843-4 (Version None)
Quarter: 2005Q1

REPORT INFORMATION
  Report Type: 
  Country: None (occurrence: None)
  Receive Date: 20050308
  Receipt Date: 20050221
  Transmission Date: 20050727
  Serious: Yes (Hospitalization)
  Sender: FDA-Public Use
  Company Number: US-2005-001840

PATIENT
  Age: 72 Year
  Sex: Female
  Weight: 54.4 kg

DRUGS (8)
  1. ULTRAVIST 300 [Suspect]
     Indication: COMPUTERISED TOMOGRAM ABDOMEN
     Dosage: 100 ML, 1 DOSE, INTRAVENOUS
     Route: 042
     Dates: start: 20050201, end: 20050201
  2. TOPROL-XL [Concomitant]
  3. LISINOPRIL [Concomitant]
  4. AVANDAMET (ROSIGLITAZONE MALEATE, METFORMIN HYDROCHLORIDE) [Concomitant]
  5. SYNTHROID [Concomitant]
  6. PLAVIX [Concomitant]
  7. PRAVACHOL [Concomitant]
  8. LOTREL (BENAZEPRIL HYDROCHLORIDE, AMLODIPINE) [Concomitant]

REACTIONS (15)
  - ACUTE CORONARY SYNDROME [None]
  - ACUTE MYOCARDIAL INFARCTION [None]
  - BRADYCARDIA [None]
  - CARDIAC MURMUR [None]
  - CARDIOVASCULAR DISORDER [None]
  - CORONARY ANGIOPLASTY [None]
  - CORONARY ARTERIAL STENT INSERTION [None]
  - DIZZINESS [None]
  - FEMORAL PULSE DECREASED [None]
  - HYPOTENSION [None]
  - PALPITATIONS [None]
  - PEDAL PULSE DECREASED [None]
  - SYNCOPE [None]
  - VENTRICULAR DYSFUNCTION [None]
  - WHITE BLOOD CELL COUNT DECREASED [None]
